FAERS Safety Report 18986333 (Version 1)
Quarter: 2021Q1

REPORT INFORMATION
  Report Type: Spontaneous
  Country: IT (occurrence: IT)
  Receive Date: 20210309
  Receipt Date: 20210309
  Transmission Date: 20210420
  Serious: Yes (Other)
  Sender: FDA-Public Use
  Company Number: IT-CELGENEUS-ITA-20210300662

PATIENT
  Age: 49 Year
  Sex: Female
  Weight: 62 kg

DRUGS (3)
  1. ABRAXANE [Suspect]
     Active Substance: PACLITAXEL
     Indication: OFF LABEL USE
  2. CARBOPLATIN. [Suspect]
     Active Substance: CARBOPLATIN
     Indication: ANAL CANCER
     Dosage: 530 MILLIGRAM
     Route: 042
     Dates: start: 20201224
  3. ABRAXANE [Suspect]
     Active Substance: PACLITAXEL
     Indication: ANAL CANCER
     Dosage: 130 MILLIGRAM
     Route: 042
     Dates: start: 20201224

REACTIONS (3)
  - Nausea [Unknown]
  - Diarrhoea [Unknown]
  - Abdominal pain [Unknown]

NARRATIVE: CASE EVENT DATE: 20210201
